FAERS Safety Report 7850431-2 (Version None)
Quarter: 2011Q4

REPORT INFORMATION
  Report Type: 
  Country: None (occurrence: None)
  Receive Date: 20111026
  Receipt Date: 20111026
  Transmission Date: 20120403
  Serious: Yes (Hospitalization)
  Sender: FDA-Public Use
  Company Number: None

PATIENT
  Sex: Female
  Weight: 84.77 kg

DRUGS (16)
  1. MORPHINE SULFATE [Concomitant]
     Route: 048
  2. CLINDAMYCIN 1 % EX GEL [Concomitant]
     Route: 061
  3. LORAZEPAM [Concomitant]
     Route: 048
  4. VENLAFAXINE -EFFEXOR XR [Concomitant]
     Route: 048
  5. PROCHLORPERAZINE [Concomitant]
     Route: 048
  6. PEMETREXED [Suspect]
     Indication: NON-SMALL CELL LUNG CANCER METASTATIC
     Dosage: 500 MG PER METERE SQUARED
     Route: 042
     Dates: start: 20110627, end: 20110718
  7. PREDNISONE [Concomitant]
     Route: 048
  8. BENADRYL [Concomitant]
  9. COLACE [Concomitant]
     Route: 048
  10. LOPERAMIDE HCL -IMODIUM A-D [Concomitant]
     Route: 048
  11. GABAPENTIN [Concomitant]
     Route: 048
  12. NAPROXEN SODIUM (ALEVE) [Concomitant]
     Route: 048
  13. POTASSIUM PHOSPHATE -NEUTRA-PHOS-K- [Concomitant]
     Route: 048
  14. BENADRYL [Concomitant]
     Route: 048
  15. MORPHINE [Concomitant]
     Route: 048
  16. LEVETIRACETAM [Concomitant]
     Route: 048

REACTIONS (1)
  - LOBAR PNEUMONIA [None]
